FAERS Safety Report 8926326 (Version 1)
Quarter: 2012Q4

REPORT INFORMATION
  Report Type: 
  Country: US (occurrence: US)
  Receive Date: 20121127
  Receipt Date: 20121127
  Transmission Date: 20130627
  Serious: Yes (Hospitalization)
  Sender: FDA-Public Use
  Company Number: US-GLAXOSMITHKLINE-A0875841A

PATIENT
  Age: 78 Year
  Sex: Female

DRUGS (3)
  1. AVANDIA [Suspect]
     Indication: DIABETES MELLITUS
     Dosage: 8MG Per day
     Route: 048
     Dates: start: 20050908, end: 20060820
  2. NORVASC [Concomitant]
  3. ZOCOR [Concomitant]

REACTIONS (4)
  - Myocardial infarction [Recovering/Resolving]
  - Coronary angioplasty [Unknown]
  - Cardiac failure congestive [Unknown]
  - Stent placement [Unknown]
